FAERS Safety Report 8192560-2 (Version None)
Quarter: 2012Q1

REPORT INFORMATION
  Report Type: 
  Country: None (occurrence: None)
  Receive Date: 20120308
  Receipt Date: 20080114
  Transmission Date: 20120608
  Serious: No
  Sender: FDA-Public Use
  Company Number: 2008BI001331

PATIENT
  Sex: Male

DRUGS (3)
  1. AVONEX [Concomitant]
     Indication: MULTIPLE SCLEROSIS
     Route: 030
     Dates: start: 20090317
  2. BACLOFEN [Concomitant]
  3. TYSABRI [Suspect]
     Indication: PROGRESSIVE MULTIPLE SCLEROSIS
     Route: 042
     Dates: start: 20071228, end: 20080125

REACTIONS (22)
  - DEPRESSION [None]
  - ABASIA [None]
  - MENTAL IMPAIRMENT [None]
  - BALANCE DISORDER [None]
  - FALL [None]
  - SPEECH DISORDER [None]
  - PARALYSIS [None]
  - SLUGGISHNESS [None]
  - GENERAL PHYSICAL HEALTH DETERIORATION [None]
  - CHILLS [None]
  - CONFUSIONAL STATE [None]
  - FEELING OF DESPAIR [None]
  - MALAISE [None]
  - MUSCULOSKELETAL STIFFNESS [None]
  - SPINAL DISORDER [None]
  - GAIT DISTURBANCE [None]
  - MOBILITY DECREASED [None]
  - COGNITIVE DISORDER [None]
  - DIPLEGIA [None]
  - DIPLOPIA [None]
  - MUSCLE SPASMS [None]
  - DRUG INEFFECTIVE [None]
